FAERS Safety Report 19793194 (Version 5)
Quarter: 2022Q1

REPORT INFORMATION
  Report Type: Report from Study
  Country: US (occurrence: US)
  Receive Date: 20210906
  Receipt Date: 20220106
  Transmission Date: 20220424
  Serious: Yes (Other)
  Sender: FDA-Public Use
  Company Number: NVSC2021US200951

PATIENT
  Sex: Female

DRUGS (1)
  1. COSENTYX [Suspect]
     Active Substance: SECUKINUMAB
     Indication: Psoriasis
     Dosage: 300 MG
     Route: 058
     Dates: start: 202110

REACTIONS (6)
  - Hip fracture [Unknown]
  - Lower limb fracture [Unknown]
  - Attention deficit hyperactivity disorder [Unknown]
  - Hypersensitivity [Unknown]
  - Fibromyalgia [Unknown]
  - Psoriasis [Unknown]
